FAERS Safety Report 7233117-7 (Version None)
Quarter: 2011Q1

REPORT INFORMATION
  Report Type: 
  Country: None (occurrence: None)
  Receive Date: 20110119
  Receipt Date: 20110110
  Transmission Date: 20110831
  Serious: Yes (Hospitalization)
  Sender: FDA-Public Use
  Company Number: FR-ASTRAZENECA-2007CG00276

PATIENT
  Age: 64 Year
  Sex: Female

DRUGS (12)
  1. KAYEXALATE [Suspect]
     Route: 048
  2. CALCIUM CARBONATE [Suspect]
     Route: 048
  3. VENOFER [Concomitant]
  4. COUMADIN [Suspect]
     Route: 048
  5. LEXOMIL [Concomitant]
  6. CINACALCET HYDROCHLORIDE [Suspect]
     Route: 048
  7. CINACALCET HYDROCHLORIDE [Suspect]
     Route: 048
  8. CALCIUM CARBONATE [Suspect]
     Route: 048
  9. OMEPRAZOLE [Concomitant]
     Route: 048
  10. ATACAND [Suspect]
     Route: 048
  11. ZOLPIDEM [Suspect]
     Route: 048
  12. PENICILLIN V [Suspect]

REACTIONS (2)
  - HYPERTENSION [None]
  - INTRAVASCULAR HAEMOLYSIS [None]
